FAERS Safety Report 25638515 (Version 1)
Quarter: 2025Q3

REPORT INFORMATION
  Report Type: Spontaneous
  Country: EU (occurrence: EU)
  Receive Date: 20250804
  Receipt Date: 20250804
  Transmission Date: 20251020
  Serious: Yes (Other)
  Sender: MYLAN
  Company Number: EU-MYLANLABS-2025M1065353

PATIENT
  Age: 34 Year
  Sex: Male

DRUGS (28)
  1. DOXAZOSIN [Suspect]
     Active Substance: DOXAZOSIN MESYLATE
     Indication: Product used for unknown indication
     Dosage: 8 MILLIGRAM, BID
  2. DOXAZOSIN [Suspect]
     Active Substance: DOXAZOSIN MESYLATE
     Dosage: 8 MILLIGRAM, BID
  3. DOXAZOSIN [Suspect]
     Active Substance: DOXAZOSIN MESYLATE
     Dosage: 8 MILLIGRAM, BID
     Route: 065
  4. DOXAZOSIN [Suspect]
     Active Substance: DOXAZOSIN MESYLATE
     Dosage: 8 MILLIGRAM, BID
     Route: 065
  5. DOXAZOSIN [Suspect]
     Active Substance: DOXAZOSIN MESYLATE
     Dosage: 10 MILLIGRAM, TID
  6. DOXAZOSIN [Suspect]
     Active Substance: DOXAZOSIN MESYLATE
     Dosage: 10 MILLIGRAM, TID
  7. DOXAZOSIN [Suspect]
     Active Substance: DOXAZOSIN MESYLATE
     Dosage: 10 MILLIGRAM, TID
     Route: 065
  8. DOXAZOSIN [Suspect]
     Active Substance: DOXAZOSIN MESYLATE
     Dosage: 10 MILLIGRAM, TID
     Route: 065
  9. BISOPROLOL [Suspect]
     Active Substance: BISOPROLOL
     Indication: Product used for unknown indication
     Dosage: 2.5 MILLIGRAM, QD
  10. BISOPROLOL [Suspect]
     Active Substance: BISOPROLOL
     Dosage: 2.5 MILLIGRAM, QD
  11. BISOPROLOL [Suspect]
     Active Substance: BISOPROLOL
     Dosage: 2.5 MILLIGRAM, QD
     Route: 065
  12. BISOPROLOL [Suspect]
     Active Substance: BISOPROLOL
     Dosage: 2.5 MILLIGRAM, QD
     Route: 065
  13. BISOPROLOL [Suspect]
     Active Substance: BISOPROLOL
  14. BISOPROLOL [Suspect]
     Active Substance: BISOPROLOL
  15. BISOPROLOL [Suspect]
     Active Substance: BISOPROLOL
     Route: 065
  16. BISOPROLOL [Suspect]
     Active Substance: BISOPROLOL
     Route: 065
  17. NITROPRUSSIDE [Concomitant]
     Active Substance: NITROPRUSSIDE
  18. NITROPRUSSIDE [Concomitant]
     Active Substance: NITROPRUSSIDE
     Route: 042
  19. NITROPRUSSIDE [Concomitant]
     Active Substance: NITROPRUSSIDE
     Route: 042
  20. NITROPRUSSIDE [Concomitant]
     Active Substance: NITROPRUSSIDE
  21. NOREPINEPHRINE [Concomitant]
     Active Substance: NOREPINEPHRINE
  22. NOREPINEPHRINE [Concomitant]
     Active Substance: NOREPINEPHRINE
     Route: 065
  23. NOREPINEPHRINE [Concomitant]
     Active Substance: NOREPINEPHRINE
     Route: 065
  24. NOREPINEPHRINE [Concomitant]
     Active Substance: NOREPINEPHRINE
  25. ARGIPRESSIN [Concomitant]
     Active Substance: ARGIPRESSIN
  26. ARGIPRESSIN [Concomitant]
     Active Substance: ARGIPRESSIN
     Route: 065
  27. ARGIPRESSIN [Concomitant]
     Active Substance: ARGIPRESSIN
     Route: 065
  28. ARGIPRESSIN [Concomitant]
     Active Substance: ARGIPRESSIN

REACTIONS (1)
  - Drug ineffective [Unknown]
